FAERS Safety Report 9917174 (Version 1)
Quarter: 2014Q1

REPORT INFORMATION
  Report Type: Spontaneous
  Country: US (occurrence: US)
  Receive Date: 20140221
  Receipt Date: 20140221
  Transmission Date: 20141002
  Serious: Yes (Other)
  Sender: FDA-Public Use
  Company Number: US-GILEAD-2012-0058926

PATIENT
  Age: 61 Year
  Sex: Male

DRUGS (4)
  1. COMPLERA [Suspect]
     Indication: HIV INFECTION
     Dosage: UNK
     Dates: start: 20120523
  2. TRUVADA [Concomitant]
     Indication: HIV INFECTION
     Dosage: UNK
     Dates: end: 20120522
  3. PREZISTA [Concomitant]
     Indication: HIV INFECTION
     Dosage: UNK
     Dates: end: 20120522
  4. NORVIR [Concomitant]
     Indication: HIV INFECTION
     Dosage: UNK
     Dates: end: 20120522

REACTIONS (4)
  - Blood HIV RNA increased [Unknown]
  - Paraesthesia [Recovering/Resolving]
  - Paraesthesia [Not Recovered/Not Resolved]
  - Headache [Unknown]
